FAERS Safety Report 4431060-X (Version None)
Quarter: 2004Q3

REPORT INFORMATION
  Report Type: 
  Country: None (occurrence: None)
  Receive Date: 20040818
  Receipt Date: 20040804
  Transmission Date: 20050211
  Serious: Yes (Hospitalization, Other)
  Sender: FDA-Public Use
  Company Number: USA040874597

PATIENT
  Age: 50 Year
  Sex: Female

DRUGS (6)
  1. FORTEO [Suspect]
     Indication: OSTEOPOROSIS
     Dates: start: 20040311, end: 20040506
  2. MULTI-VITAMIN [Concomitant]
  3. CALCIUM CARBONATE [Concomitant]
  4. VITMINE E [Concomitant]
  5. POTASSIUM CHLORIDE [Concomitant]
  6. FOSAMAX [Concomitant]

REACTIONS (5)
  - ACIDOSIS [None]
  - HYPOPARATHYROIDISM [None]
  - NEPHROLITHIASIS [None]
  - PHARMACEUTICAL PRODUCT COMPLAINT [None]
  - RENAL FAILURE [None]
